FAERS Safety Report 4377607-3 (Version None)
Quarter: 2004Q2

REPORT INFORMATION
  Report Type: 
  Country: None (occurrence: None)
  Receive Date: 20040615
  Receipt Date: 20030901
  Transmission Date: 20050107
  Serious: Yes (Hospitalization, Disabling)
  Sender: FDA-Public Use
  Company Number: 3611

PATIENT
  Age: 67 Year
  Sex: Male

DRUGS (11)
  1. HYCAMTIN [Suspect]
     Indication: LUNG CARCINOMA CELL TYPE UNSPECIFIED STAGE IV
     Dosage: 1.43MG PER DAY
     Route: 042
     Dates: start: 20030625, end: 20030701
  2. PACLITAXEL [Suspect]
     Indication: SMALL CELL LUNG CANCER STAGE UNSPECIFIED
     Dosage: 30MG PER DAY
     Route: 042
     Dates: start: 20030701, end: 20030701
  3. CARBOPLATIN [Suspect]
     Indication: LUNG CARCINOMA CELL TYPE UNSPECIFIED STAGE IV
     Route: 042
     Dates: start: 20030414, end: 20030530
  4. ETOPOSIDE [Suspect]
     Indication: LUNG CARCINOMA CELL TYPE UNSPECIFIED STAGE IV
     Dosage: 140MG PER DAY
     Route: 042
     Dates: start: 20030414, end: 20030416
  5. GRANISETRON [Concomitant]
     Indication: VOMITING
     Dosage: 3MG PER DAY
     Route: 042
     Dates: start: 20030625, end: 20030701
  6. RANITIDINE [Concomitant]
     Indication: PROPHYLAXIS
     Dosage: 50MG PER DAY
     Route: 042
     Dates: start: 20030701
  7. DEXAMETHASONE [Concomitant]
     Indication: PROPHYLAXIS
     Dosage: 20MG PER DAY
     Route: 042
     Dates: start: 20030701
  8. DIPHENHYDRAMINE HCL [Concomitant]
     Indication: PROPHYLAXIS
     Dosage: 50MG PER DAY
     Route: 048
     Dates: start: 20030701
  9. METOCLOPRAMIDE [Concomitant]
     Indication: GASTRIC HYPERMOTILITY
     Dosage: 10MG PER DAY
     Route: 042
     Dates: start: 20030711
  10. LEVOFLOXACIN [Concomitant]
     Indication: ANTIFUNGAL PROPHYLAXIS
     Dosage: 300MG PER DAY
     Route: 048
     Dates: start: 20030708, end: 20030711
  11. CODEINE PHOSPHATE AND ACETAMINOPHEN [Concomitant]
     Indication: ANALGESIC EFFECT
     Dosage: 60MG PER DAY
     Route: 048
     Dates: start: 20030708, end: 20030711

REACTIONS (18)
  - ALANINE AMINOTRANSFERASE INCREASED [None]
  - ANAEMIA [None]
  - BLOOD ALKALINE PHOSPHATASE INCREASED [None]
  - BLOOD LACTATE DEHYDROGENASE INCREASED [None]
  - BLOOD UREA INCREASED [None]
  - C-REACTIVE PROTEIN INCREASED [None]
  - CONDITION AGGRAVATED [None]
  - DYSPNOEA [None]
  - FEBRILE NEUTROPENIA [None]
  - HYPOALBUMINAEMIA [None]
  - HYPOPROTEINAEMIA [None]
  - INFECTION [None]
  - INTERSTITIAL LUNG DISEASE [None]
  - LEUKOPENIA [None]
  - NEUTROPENIA [None]
  - OXYGEN SATURATION DECREASED [None]
  - PYREXIA [None]
  - THROMBOCYTOPENIA [None]
